FAERS Safety Report 5584312-4 (Version None)
Quarter: 2008Q1

REPORT INFORMATION
  Report Type: 
  Country: None (occurrence: None)
  Receive Date: 20080108
  Receipt Date: 20071231
  Transmission Date: 20080703
  Serious: Yes (Hospitalization)
  Sender: FDA-Public Use
  Company Number: FR-BRISTOL-MYERS SQUIBB COMPANY-14032064

PATIENT
  Age: 60 Year
  Sex: Male

DRUGS (2)
  1. ERBITUX [Suspect]
     Indication: MALIGNANT PALATE NEOPLASM
     Route: 042
  2. RADIOTHERAPY [Concomitant]
     Indication: MALIGNANT PALATE NEOPLASM
     Dosage: 1 DOSAGE FORM = 70 GRAY

REACTIONS (2)
  - COAGULOPATHY [None]
  - HEPATIC CIRRHOSIS [None]
